FAERS Safety Report 7654322-1 (Version None)
Quarter: 2011Q3

REPORT INFORMATION
  Report Type: 
  Country: None (occurrence: None)
  Receive Date: 20110803
  Receipt Date: 20110725
  Transmission Date: 20111222
  Serious: Yes (Hospitalization)
  Sender: FDA-Public Use
  Company Number: JP-JNJFOC-20110706260

PATIENT
  Sex: Female
  Weight: 63 kg

DRUGS (10)
  1. CLONAZEPAM [Concomitant]
     Indication: AKATHISIA
     Route: 048
     Dates: start: 20110606, end: 20110706
  2. CLONAZEPAM [Concomitant]
     Indication: DYSKINESIA
     Route: 048
     Dates: start: 20110606, end: 20110706
  3. RISPERDAL [Suspect]
     Indication: SCHIZOPHRENIA, RESIDUAL TYPE
     Route: 048
     Dates: start: 20110107, end: 20110605
  4. INVEGA [Suspect]
     Indication: SCHIZOPHRENIA, RESIDUAL TYPE
     Route: 048
     Dates: start: 20110701, end: 20110706
  5. MEILAX [Concomitant]
     Route: 048
     Dates: end: 20110706
  6. AKINETON [Concomitant]
     Indication: AKATHISIA
     Route: 048
     Dates: end: 20110616
  7. LITHIUM CARBONATE [Concomitant]
     Route: 048
     Dates: end: 20110706
  8. LORAZEPAM [Concomitant]
     Route: 048
     Dates: end: 20110706
  9. INVEGA [Suspect]
     Route: 048
     Dates: start: 20110606, end: 20110630
  10. AKINETON [Concomitant]
     Indication: DYSKINESIA
     Route: 048
     Dates: end: 20110616

REACTIONS (3)
  - MALAISE [None]
  - DEPRESSIVE SYMPTOM [None]
  - IRRITABILITY [None]
